FAERS Safety Report 5736476-7 (Version None)
Quarter: 2008Q2

REPORT INFORMATION
  Report Type: 
  Country: None (occurrence: None)
  Receive Date: 20080509
  Receipt Date: 20080509
  Transmission Date: 20081010
  Serious: Yes (Other)
  Sender: FDA-Public Use
  Company Number: None

PATIENT
  Age: 76 Year
  Sex: Female

DRUGS (1)
  1. DIGITEK  0.25MG  AMIDE-BERTEK- [Suspect]
     Dosage: 0.25MG DAILY PO
     Route: 048
     Dates: start: 20080211, end: 20080506

REACTIONS (2)
  - DIZZINESS [None]
  - VISION BLURRED [None]
